FAERS Safety Report 13122832 (Version 3)
Quarter: 2017Q1

REPORT INFORMATION
  Report Type: Spontaneous
  Country: IT (occurrence: IT)
  Receive Date: 20170117
  Receipt Date: 20170131
  Transmission Date: 20170428
  Serious: Yes (Death, Hospitalization, Other)
  Sender: FDA-Public Use
  Company Number: IT-GILEAD-2017-0253432

PATIENT
  Age: 85 Year
  Sex: Male
  Weight: 77 kg

DRUGS (9)
  1. LIMPIDEX [Concomitant]
     Active Substance: LANSOPRAZOLE
  2. ENALAPRIL [Concomitant]
     Active Substance: ENALAPRIL
  3. DACLATASVIR. [Suspect]
     Active Substance: DACLATASVIR
     Indication: HEPATITIS C VIRUS TEST POSITIVE
     Dosage: 60 MG, QD
     Route: 048
     Dates: start: 20161103, end: 20161229
  4. KANRENOL [Concomitant]
     Active Substance: CANRENOATE POTASSIUM
  5. DEURSIL [Concomitant]
     Active Substance: URSODIOL
  6. SOFOSBUVIR [Suspect]
     Active Substance: SOFOSBUVIR
     Indication: HEPATITIS C VIRUS TEST POSITIVE
     Dosage: 400 MG, QD
     Route: 065
     Dates: start: 20161103, end: 20161229
  7. URODIE [Concomitant]
  8. LASIX [Concomitant]
     Active Substance: FUROSEMIDE
  9. LAEVOLAC [Concomitant]
     Active Substance: LACTULOSE

REACTIONS (3)
  - Hepatic failure [Fatal]
  - Condition aggravated [Fatal]
  - Hyperbilirubinaemia [Fatal]

NARRATIVE: CASE EVENT DATE: 20161203
